FAERS Safety Report 10253830 (Version 1)
Quarter: 2014Q2

REPORT INFORMATION
  Report Type: Spontaneous
  Country: US (occurrence: US)
  Receive Date: 20140623
  Receipt Date: 20140623
  Transmission Date: 20141212
  Serious: No
  Sender: FDA-Public Use
  Company Number: US-ZOGENIX, INC.-2011ZX000564

PATIENT
  Sex: Female
  Weight: 50.85 kg

DRUGS (10)
  1. SUMAVEL DOSEPRO [Suspect]
     Indication: MIGRAINE
  2. CYCLOBENZAPRINE [Concomitant]
     Indication: PRODUCT USED FOR UNKNOWN INDICATION
     Route: 048
  3. PROMETHAZINE [Concomitant]
     Indication: NAUSEA
  4. DOLGIC PLUS [Concomitant]
     Indication: PAIN
     Route: 048
  5. TEMAZEPAM [Concomitant]
     Indication: PRODUCT USED FOR UNKNOWN INDICATION
  6. MORPHINE [Concomitant]
     Indication: PAIN
     Route: 048
  7. METHADONE [Concomitant]
     Indication: PAIN
     Route: 048
  8. LOSARTAN [Concomitant]
     Indication: BLOOD PRESSURE
  9. AMLODIPINE [Concomitant]
     Indication: HYPERTENSION
  10. XANAX [Concomitant]
     Indication: ANXIETY

REACTIONS (3)
  - Flushing [Recovered/Resolved]
  - Device malfunction [Recovered/Resolved]
  - Accidental exposure to product [Recovered/Resolved]
